FAERS Safety Report 4403484-8 (Version None)
Quarter: 2004Q3

REPORT INFORMATION
  Report Type: 
  Country: None (occurrence: None)
  Receive Date: 20040721
  Receipt Date: 20040708
  Transmission Date: 20050211
  Serious: Yes (Death, Life-Threatening)
  Sender: FDA-Public Use
  Company Number: JP-BRISTOL-MYERS SQUIBB COMPANY-12646113

PATIENT
  Age: 60 Year
  Sex: Female

DRUGS (3)
  1. ENDOXAN [Suspect]
     Indication: BREAST CANCER
     Route: 042
     Dates: start: 20001201, end: 20010601
  2. EPIRUBICIN [Suspect]
     Indication: BREAST CANCER
     Route: 042
     Dates: start: 20001201, end: 20010601
  3. RADIATION THERAPY [Concomitant]
     Indication: BREAST CANCER
     Dosage: DOSE=50 GY
     Dates: start: 20010601, end: 20010601

REACTIONS (3)
  - CHRONIC MYELOMONOCYTIC LEUKAEMIA [None]
  - DEATH [None]
  - MYELODYSPLASTIC SYNDROME [None]
